FAERS Safety Report 18020111 (Version 1)
Quarter: 2020Q3

REPORT INFORMATION
  Report Type: Spontaneous
  Country: US (occurrence: US)
  Receive Date: 20200714
  Receipt Date: 20200714
  Transmission Date: 20201103
  Serious: Yes (Other)
  Sender: FDA-Public Use
  Company Number: None

PATIENT
  Age: 75 Year
  Sex: Male
  Weight: 94.95 kg

DRUGS (11)
  1. OLMESARTAN 40MG [Concomitant]
     Active Substance: OLMESARTAN
  2. DOXAZOSIN 2MG TAB [Concomitant]
  3. SPIRIVA [Concomitant]
     Active Substance: TIOTROPIUM BROMIDE MONOHYDRATE
  4. MECLIZINE 25MG TAB [Concomitant]
  5. PANTOPRAZOLE SODIUM DELAYED RELEASE TABLET [Suspect]
     Active Substance: PANTOPRAZOLE SODIUM
     Indication: GASTROOESOPHAGEAL REFLUX DISEASE
     Route: 048
     Dates: start: 20200615, end: 20200713
  6. CETIRIZINE 10MG TAB [Concomitant]
  7. PROBIOTIC [Concomitant]
     Active Substance: PROBIOTICS NOS
  8. LEVOTHYROXINE 137 MCG TAB [Concomitant]
  9. SIMVASTATIN 20MG TAB [Concomitant]
  10. OMEGA?3 FISH OIL CAPS [Concomitant]
  11. BREO?ELLIPTA 200?25 INHALER [Concomitant]

REACTIONS (2)
  - Swelling [None]
  - Pharyngeal swelling [None]

NARRATIVE: CASE EVENT DATE: 20200701
